FAERS Safety Report 21027428 (Version 2)
Quarter: 2022Q3

REPORT INFORMATION
  Report Type: Report from Study
  Country: US (occurrence: None)
  Receive Date: 20220630
  Receipt Date: 20220810
  Transmission Date: 20221027
  Serious: Yes (Other)
  Sender: FDA-Public Use
  Company Number: 2022A237619

PATIENT

DRUGS (1)
  1. CALQUENCE [Suspect]
     Active Substance: ACALABRUTINIB
     Indication: Chronic lymphocytic leukaemia
     Route: 065

REACTIONS (7)
  - Tumour lysis syndrome [Unknown]
  - Haemorrhage [Unknown]
  - Atrial fibrillation [Unknown]
  - Hypertension [Unknown]
  - Anaemia [Unknown]
  - Arthralgia [Unknown]
  - Myalgia [Unknown]
